FAERS Safety Report 24131423 (Version 4)
Quarter: 2024Q3

REPORT INFORMATION
  Report Type: Spontaneous
  Country: US (occurrence: US)
  Receive Date: 20240724
  Receipt Date: 20240903
  Transmission Date: 20241016
  Serious: Yes (Other)
  Sender: JOHNSON AND JOHNSON
  Company Number: US-JNJFOC-20240740947

PATIENT
  Sex: Female

DRUGS (1)
  1. NEUTROGENA AGE SHIELD FACE OIL FREE SUNSCRN BR?D SPECT SPF 70 (AV\HOM\ [Suspect]
     Active Substance: AVOBENZONE\HOMOSALATE\OCTISALATE\OCTOCRYLENE
     Indication: Product used for unknown indication
     Dosage: USED A LIBERAL AMOUNT
     Route: 061
     Dates: start: 20240630

REACTIONS (3)
  - Burns third degree [Unknown]
  - Sunburn [Unknown]
  - Drug ineffective [Unknown]

NARRATIVE: CASE EVENT DATE: 20240101
